FAERS Safety Report 6116349-0 (Version None)
Quarter: 2009Q1

REPORT INFORMATION
  Report Type: 
  Country: None (occurrence: None)
  Receive Date: 20090314
  Receipt Date: 20081209
  Transmission Date: 20090719
  Serious: No
  Sender: FDA-Public Use
  Company Number: US-ABBOTT-08P-163-0491942-00

PATIENT
  Sex: Male
  Weight: 104.42 kg

DRUGS (7)
  1. HUMIRA [Suspect]
     Indication: CROHN'S DISEASE
     Dates: start: 20081120
  2. HUMIRA [Suspect]
     Indication: FISTULA
     Dates: start: 20081204, end: 20081204
  3. HUMIRA [Suspect]
     Dates: start: 20081204
  4. MESALAZINE [Concomitant]
     Indication: DRUG USE FOR UNKNOWN INDICATION
  5. BUDESONIDE [Concomitant]
     Indication: DRUG USE FOR UNKNOWN INDICATION
  6. CIPROFLOXACIN [Concomitant]
     Indication: DRUG USE FOR UNKNOWN INDICATION
  7. METRONIDAZOLE [Concomitant]
     Indication: DRUG USE FOR UNKNOWN INDICATION

REACTIONS (1)
  - INCORRECT DOSE ADMINISTERED [None]
